FAERS Safety Report 7104203-7 (Version None)
Quarter: 2010Q4

REPORT INFORMATION
  Report Type: 
  Country: None (occurrence: None)
  Receive Date: 20101115
  Receipt Date: 20100607
  Transmission Date: 20110411
  Serious: No
  Sender: FDA-Public Use
  Company Number: US-ALLERGAN-1007454US

PATIENT
  Age: 46 Year
  Sex: Female

DRUGS (2)
  1. BOTOXA? [Suspect]
     Indication: MUSCLE SPASTICITY
     Dosage: 100 UNITS
     Dates: start: 20100531, end: 20100531
  2. BOTOXA? [Suspect]
     Dosage: 50 UNITS
     Dates: start: 20100531, end: 20100531

REACTIONS (1)
  - SKIN EXFOLIATION [None]
